FAERS Safety Report 4585710-8 (Version None)
Quarter: 2005Q1

REPORT INFORMATION
  Report Type: 
  Country: None (occurrence: None)
  Receive Date: 20050217
  Receipt Date: 20050210
  Transmission Date: 20050727
  Serious: Yes (Hospitalization)
  Sender: FDA-Public Use
  Company Number: PHFR2005GB00864

PATIENT

DRUGS (3)
  1. GLEEVEC [Suspect]
     Indication: CHRONIC MYELOID LEUKAEMIA
     Dosage: UNK, UNK
     Route: 048
  2. CO-CODAMOL [Concomitant]
  3. OMEPRAZOLE [Concomitant]

REACTIONS (7)
  - AFFECTIVE DISORDER [None]
  - ANXIETY [None]
  - CONFUSIONAL STATE [None]
  - DELUSIONAL DISORDER, UNSPECIFIED TYPE [None]
  - DERMATITIS [None]
  - DERMATITIS BULLOUS [None]
  - PSYCHOTIC DISORDER [None]
